FAERS Safety Report 24738369 (Version 1)
Quarter: 2024Q4

REPORT INFORMATION
  Report Type: Spontaneous
  Country: CA (occurrence: CA)
  Receive Date: 20241216
  Receipt Date: 20241216
  Transmission Date: 20250114
  Serious: Yes (Other)
  Sender: PFIZER
  Company Number: CA-PFIZER INC-202400322323

PATIENT
  Age: 63 Year
  Sex: Male

DRUGS (2)
  1. METHOTREXATE SODIUM [Suspect]
     Active Substance: METHOTREXATE SODIUM
     Dosage: 1 DF
     Route: 065
     Dates: start: 2002
  2. CODEINE [Concomitant]
     Active Substance: CODEINE
     Dosage: 1 DF
     Dates: start: 2008

REACTIONS (1)
  - Tendon rupture [Unknown]
